FAERS Safety Report 20184202 (Version 1)
Quarter: 2021Q4

REPORT INFORMATION
  Report Type: Spontaneous
  Country: DE (occurrence: DE)
  Receive Date: 20211214
  Receipt Date: 20211214
  Transmission Date: 20220303
  Serious: Yes (Other)
  Sender: FDA-Public Use
  Company Number: DE-DCGMA-21195125

PATIENT
  Age: 79 Year
  Sex: Male
  Weight: 87 kg

DRUGS (1)
  1. OFEV [Suspect]
     Active Substance: NINTEDANIB
     Indication: Pulmonary fibrosis
     Dosage: DAILY DOSE: 300 MG MILLGRAM(S) EVERY DAYS 2 SEPARATED DOSES
     Route: 048
     Dates: start: 20171129

REACTIONS (1)
  - Small cell lung cancer [Unknown]

NARRATIVE: CASE EVENT DATE: 20211109
